FAERS Safety Report 8912766 (Version 2)
Quarter: 2013Q1

REPORT INFORMATION
  Report Type: Spontaneous
  Country: US (occurrence: US)
  Receive Date: 20121115
  Receipt Date: 20130313
  Transmission Date: 20140127
  Serious: No
  Sender: FDA-Public Use
  Company Number: US-B.I. PHARMACEUTICALS,INC./RIDGEFIELD-2012-BI-00162BP

PATIENT
  Sex: Male
  Weight: 68 kg

DRUGS (7)
  1. PRADAXA [Suspect]
     Indication: ATRIAL FIBRILLATION
     Dosage: 300 MG
     Route: 048
     Dates: start: 201111
  2. PRADAXA [Suspect]
     Dosage: 150 MG
     Route: 048
     Dates: start: 20120710
  3. DIGOXIN [Concomitant]
     Indication: CEREBROVASCULAR ACCIDENT PROPHYLAXIS
     Dosage: 0.125 MG
     Route: 048
     Dates: start: 2002
  4. SIMVASTATIN [Concomitant]
     Indication: CEREBROVASCULAR ACCIDENT PROPHYLAXIS
     Dosage: 20 MG
     Route: 048
     Dates: start: 2002
  5. COZAAR [Concomitant]
     Indication: HYPERTENSION
     Dosage: 25 MG
     Route: 048
  6. LANOXIN [Concomitant]
     Indication: ATRIAL FIBRILLATION
     Route: 048
  7. ZOCOR [Concomitant]
     Indication: HYPERLIPIDAEMIA
     Route: 048

REACTIONS (1)
  - Liver function test abnormal [Not Recovered/Not Resolved]
